FAERS Safety Report 19701182 (Version 1)
Quarter: 2021Q3

REPORT INFORMATION
  Report Type: Spontaneous
  Country: CA (occurrence: CA)
  Receive Date: 20210814
  Receipt Date: 20210814
  Transmission Date: 20211014
  Serious: Yes (Other)
  Sender: FDA-Public Use
  Company Number: CA-TEVA-2021-CA-1941071

PATIENT
  Age: 18 Year
  Sex: Female
  Weight: 52 kg

DRUGS (1)
  1. TEVA?MIRTAZAPINE [Suspect]
     Active Substance: MIRTAZAPINE
     Indication: DEPRESSION
     Dosage: 1.5 DOSAGE FORMS DAILY;
     Route: 048

REACTIONS (8)
  - Optic disc haemorrhage [Unknown]
  - Headache [Unknown]
  - Visual impairment [Unknown]
  - Nausea [Unknown]
  - Vomiting [Unknown]
  - Idiopathic intracranial hypertension [Unknown]
  - Papilloedema [Unknown]
  - Photopsia [Unknown]
